FAERS Safety Report 25483644 (Version 2)
Quarter: 2025Q3

REPORT INFORMATION
  Report Type: Spontaneous
  Country: US (occurrence: US)
  Receive Date: 20250626
  Receipt Date: 20250707
  Transmission Date: 20251020
  Serious: No
  Sender: VERTEX
  Company Number: US-VERTEX PHARMACEUTICALS-2025-009992

PATIENT
  Age: 41 Year

DRUGS (5)
  1. TRIKAFTA [Suspect]
     Active Substance: ELEXACAFTOR\IVACAFTOR\TEZACAFTOR
     Indication: Cystic fibrosis
     Route: 048
  2. TRIKAFTA [Suspect]
     Active Substance: ELEXACAFTOR\IVACAFTOR\TEZACAFTOR
     Route: 048
  3. PULMOZYME [Concomitant]
     Active Substance: DORNASE ALFA
  4. DUONEB [Concomitant]
     Active Substance: ALBUTEROL SULFATE\IPRATROPIUM BROMIDE
  5. MUCOMYST [Concomitant]
     Active Substance: ACETYLCYSTEINE

REACTIONS (6)
  - Feeling abnormal [Not Recovered/Not Resolved]
  - Haemoptysis [Unknown]
  - Fatigue [Unknown]
  - Secretion discharge [Unknown]
  - Pancreatic failure [Unknown]
  - Sweat test abnormal [Unknown]
